FAERS Safety Report 9187236 (Version 1)
Quarter: 2013Q1

REPORT INFORMATION
  Report Type: Spontaneous
  Country: GB (occurrence: GB)
  Receive Date: 20130325
  Receipt Date: 20130325
  Transmission Date: 20140127
  Serious: Yes (Hospitalization, Other)
  Sender: FDA-Public Use
  Company Number: GB-ASTRAZENECA-2013SE17619

PATIENT
  Age: 61 Year
  Sex: Female

DRUGS (9)
  1. TICAGRELOR [Suspect]
     Route: 048
  2. RAMIPRIL [Suspect]
     Route: 048
  3. ASPIRIN [Suspect]
     Route: 048
  4. SERTRALINE [Suspect]
     Route: 048
  5. VENLAFAXINE [Suspect]
     Route: 065
  6. VENLAFAXINE [Suspect]
     Route: 065
  7. ATORVASTATIN [Concomitant]
     Route: 048
  8. BISOPROLOL [Concomitant]
     Route: 048
  9. LANSOPRAZOLE [Concomitant]
     Route: 048

REACTIONS (9)
  - Faeces discoloured [Unknown]
  - Decreased appetite [Recovering/Resolving]
  - Haemoglobin decreased [Unknown]
  - Weight decreased [Recovering/Resolving]
  - Orthostatic hypotension [Unknown]
  - Dyspepsia [Recovering/Resolving]
  - Abdominal pain upper [Recovering/Resolving]
  - Diarrhoea [Unknown]
  - Myocardial infarction [Unknown]
